FAERS Safety Report 6901787-6 (Version None)
Quarter: 2010Q3

REPORT INFORMATION
  Report Type: 
  Country: None (occurrence: None)
  Receive Date: 20100802
  Receipt Date: 20100802
  Transmission Date: 20110219
  Serious: Yes (Other)
  Sender: FDA-Public Use
  Company Number: None

PATIENT
  Age: 27 Year
  Sex: Female
  Weight: 120.6568 kg

DRUGS (3)
  1. PROMETHAZINE [Suspect]
     Indication: GASTROINTESTINAL INFECTION
     Dosage: 1/2 TO 1 TABLET EVERY 8 HOURS PO
     Route: 048
     Dates: start: 20100728, end: 20100729
  2. GAS-X [Concomitant]
  3. CULTURELLE [Concomitant]

REACTIONS (4)
  - INITIAL INSOMNIA [None]
  - MOVEMENT DISORDER [None]
  - MUSCLE TIGHTNESS [None]
  - MYALGIA [None]
